FAERS Safety Report 4454361-8 (Version None)
Quarter: 2004Q3

REPORT INFORMATION
  Report Type: 
  Country: None (occurrence: None)
  Receive Date: 20040920
  Receipt Date: 20040902
  Transmission Date: 20050211
  Serious: Yes (Disabling)
  Sender: FDA-Public Use
  Company Number: US-MERCK-0409USA00365

PATIENT
  Age: 70 Year
  Sex: Male
  Weight: 95 kg

DRUGS (6)
  1. CARDIZEM [Concomitant]
     Route: 048
  2. ZETIA [Suspect]
     Indication: DYSLIPIDAEMIA
     Route: 048
     Dates: start: 20031009, end: 20031101
  3. HYDRODIURIL [Concomitant]
     Route: 048
  4. ISORDIL [Concomitant]
     Route: 048
  5. COZAAR [Concomitant]
     Route: 048
  6. SINGULAIR [Concomitant]
     Route: 048

REACTIONS (3)
  - BLOOD CREATINE PHOSPHOKINASE INCREASED [None]
  - MUSCLE CRAMP [None]
  - MYALGIA [None]
